FAERS Safety Report 24438956 (Version 1)
Quarter: 2024Q4

REPORT INFORMATION
  Report Type: Spontaneous
  Country: US (occurrence: None)
  Receive Date: 20241014
  Receipt Date: 20241014
  Transmission Date: 20250115
  Serious: Yes (unspecified)
  Sender: Public
  Company Number: None

PATIENT
  Age: 67 Year
  Sex: Female

DRUGS (11)
  1. XGEVA [Suspect]
     Active Substance: DENOSUMAB
     Indication: Breast cancer metastatic
     Dates: start: 20240604, end: 20240808
  2. KISQALI [Concomitant]
     Active Substance: RIBOCICLIB
  3. LETROZOLE [Concomitant]
     Active Substance: LETROZOLE
  4. LIPITOR [Concomitant]
     Active Substance: ATORVASTATIN CALCIUM
  5. POTASSIUM [Concomitant]
     Active Substance: POTASSIUM
  6. PRILOSEC [Concomitant]
     Active Substance: OMEPRAZOLE MAGNESIUM
  7. LOSARTAN [Concomitant]
     Active Substance: LOSARTAN
  8. lexipro [Concomitant]
  9. VITAMIN D [Concomitant]
     Active Substance: VITAMIN D NOS
  10. CALCIUM [Concomitant]
     Active Substance: CALCIUM
  11. MAGNESIUM [Concomitant]
     Active Substance: MAGNESIUM

REACTIONS (3)
  - Pain in jaw [None]
  - Therapy cessation [None]
  - Gingival disorder [None]

NARRATIVE: CASE EVENT DATE: 20240918
